FAERS Safety Report 4501383-4 (Version None)
Quarter: 2004Q4

REPORT INFORMATION
  Report Type: 
  Country: None (occurrence: None)
  Receive Date: 20041110
  Receipt Date: 20041101
  Transmission Date: 20050328
  Serious: Yes (Other)
  Sender: FDA-Public Use
  Company Number: 2004239158US

PATIENT
  Age: 71 Year
  Sex: Female
  Weight: 47.2 kg

DRUGS (2)
  1. BEXTRA [Suspect]
     Indication: SCIATICA
     Dosage: 10 MG, QD, ORAL
     Route: 048
     Dates: start: 20041006, end: 20041014
  2. CONJUGATED ESTROGENS [Concomitant]

REACTIONS (6)
  - BRAIN MASS [None]
  - BRAIN OEDEMA [None]
  - DIZZINESS [None]
  - INSOMNIA [None]
  - PULMONARY MASS [None]
  - UNEVALUABLE EVENT [None]
